FAERS Safety Report 15591511 (Version 1)
Quarter: 2018Q4

REPORT INFORMATION
  Report Type: Spontaneous
  Country: US (occurrence: US)
  Receive Date: 20181102
  Receipt Date: 20181102
  Transmission Date: 20190205
  Serious: No
  Sender: FDA-Public Use
  Company Number: None

PATIENT
  Sex: Female

DRUGS (1)
  1. PROGESTERONE/SESAME MDV 50 MG/ML, STERIS LABS [Suspect]
     Active Substance: PROGESTERONE
     Indication: INFERTILITY FEMALE
     Route: 030
     Dates: start: 20181016

REACTIONS (3)
  - Injection site swelling [None]
  - Musculoskeletal disorder [None]
  - Hypersensitivity [None]
